FAERS Safety Report 25856331 (Version 2)
Quarter: 2025Q4

REPORT INFORMATION
  Report Type: Spontaneous
  Country: AU (occurrence: None)
  Receive Date: 20250928
  Receipt Date: 20251006
  Transmission Date: 20260118
  Serious: Yes (Other)
  Sender: ORION
  Company Number: AU-PFIZER INC-202500181477

PATIENT
  Age: 9 Decade
  Sex: Female

DRUGS (3)
  1. METHOTREXATE (METHOTREXATE SODIUM) [Suspect]
     Active Substance: METHOTREXATE SODIUM
     Indication: Product used for unknown indication
  2. METHOTREXATE (METHOTREXATE SODIUM) [Suspect]
     Active Substance: METHOTREXATE SODIUM
  3. METHOTREXATE (METHOTREXATE SODIUM) [Suspect]
     Active Substance: METHOTREXATE SODIUM

REACTIONS (7)
  - Barrett^s oesophagus [Unknown]
  - Eye disorder [Unknown]
  - Bone disorder [Unknown]
  - Eczema [Unknown]
  - Abdominal pain upper [Unknown]
  - Headache [Unknown]
  - Lung disorder [Unknown]
